FAERS Safety Report 9061824 (Version 1)
Quarter: 2013Q1

REPORT INFORMATION
  Report Type: Spontaneous
  Country: US (occurrence: None)
  Receive Date: 20130122
  Receipt Date: 20130122
  Transmission Date: 20140127
  Serious: Yes (Death)
  Sender: FDA-Public Use
  Company Number: DSA_61950_2013

PATIENT
  Age: 31 Year
  Sex: Male

DRUGS (3)
  1. DILTIAZEM HYDROCHLORIDE [Suspect]
     Dosage: (DF, ONCE ORAL)
     Route: 048
  2. LISINOPRIL [Suspect]
     Dosage: (DF, ONCE)
  3. MIRTAZAPINE [Suspect]
     Dosage: (DF, ONCE)

REACTIONS (1)
  - Self injurious behaviour [None]
